FAERS Safety Report 8990234 (Version 6)
Quarter: 2013Q1

REPORT INFORMATION
  Report Type: Spontaneous
  Country: JP (occurrence: JP)
  Receive Date: 20121228
  Receipt Date: 20130115
  Transmission Date: 20140127
  Serious: Yes (Life-Threatening, Hospitalization)
  Sender: FDA-Public Use
  Company Number: JP-PFIZER INC-2012328307

PATIENT
  Age: 82 Year
  Sex: Male
  Weight: 42 kg

DRUGS (4)
  1. INLYTA [Suspect]
     Indication: RENAL CELL CARCINOMA
     Dosage: 5 MG, 2X/DAY
     Route: 048
     Dates: start: 20120908, end: 20121218
  2. RANMARK [Concomitant]
     Indication: RENAL CELL CARCINOMA
     Dosage: 120 MG, 1X/DAY
     Route: 058
     Dates: start: 20120808, end: 20121205
  3. LANSOPRAZOLE [Concomitant]
     Dosage: 30 MG, 1X/DAY
     Route: 048
  4. TAMSLON [Concomitant]
     Dosage: 0.2 MG, 1X/DAY
     Route: 048

REACTIONS (3)
  - Hepatic function abnormal [Recovered/Resolved with Sequelae]
  - Pneumonia [Recovering/Resolving]
  - Multi-organ failure [Recovering/Resolving]
